FAERS Safety Report 6465809-1 (Version None)
Quarter: 2009Q4

REPORT INFORMATION
  Report Type: 
  Country: None (occurrence: None)
  Receive Date: 20091201
  Receipt Date: 20081107
  Transmission Date: 20100525
  Serious: No
  Sender: FDA-Public Use
  Company Number: US-AMGEN-KDL318039

PATIENT
  Sex: Female

DRUGS (2)
  1. ENBREL [Suspect]
     Indication: RHEUMATOID ARTHRITIS
     Dates: start: 20081107
  2. ENBREL [Suspect]
     Indication: POLYMYALGIA RHEUMATICA

REACTIONS (2)
  - DRUG INEFFECTIVE [None]
  - PAIN [None]
